FAERS Safety Report 4455605-9 (Version None)
Quarter: 2004Q3

REPORT INFORMATION
  Report Type: 
  Country: None (occurrence: None)
  Receive Date: 20040917
  Receipt Date: 20040831
  Transmission Date: 20050211
  Serious: Yes (Hospitalization)
  Sender: FDA-Public Use
  Company Number: US_0409105189

PATIENT
  Age: 70 Year
  Sex: Female

DRUGS (1)
  1. RALOXIFENE HCL [Suspect]

REACTIONS (1)
  - MYASTHENIA GRAVIS [None]
